FAERS Safety Report 18647887 (Version 1)
Quarter: 2020Q4

REPORT INFORMATION
  Report Type: Spontaneous
  Country: US (occurrence: US)
  Receive Date: 20201222
  Receipt Date: 20201222
  Transmission Date: 20210114
  Serious: Yes (Death, Hospitalization, Other)
  Sender: FDA-Public Use
  Company Number: US-ASTELLAS-2020US044451

PATIENT
  Age: 65 Year
  Sex: Male

DRUGS (3)
  1. MYCOPHENOLATE [Suspect]
     Active Substance: MYCOPHENOLIC ACID
     Indication: RENAL TRANSPLANT
     Route: 065
  2. TACROLIMUS. [Suspect]
     Active Substance: TACROLIMUS
     Indication: RENAL TRANSPLANT
     Route: 065
  3. PREDNISONE. [Suspect]
     Active Substance: PREDNISONE
     Indication: RENAL TRANSPLANT
     Route: 065

REACTIONS (14)
  - Osteomyelitis [Unknown]
  - Septic shock [Unknown]
  - Escherichia infection [Unknown]
  - Tenosynovitis [Unknown]
  - Clostridium difficile colitis [Unknown]
  - Mycobacterium haemophilum infection [Fatal]
  - Renal failure [Unknown]
  - Sepsis syndrome [Unknown]
  - Multiple organ dysfunction syndrome [Fatal]
  - Acidosis [Unknown]
  - Localised infection [Unknown]
  - Acarodermatitis [Unknown]
  - Urosepsis [Unknown]
  - Brain abscess [Unknown]
